FAERS Safety Report 18400984 (Version 4)
Quarter: 2020Q4

REPORT INFORMATION
  Report Type: Report from Study
  Country: FR (occurrence: FR)
  Receive Date: 20201019
  Receipt Date: 20201214
  Transmission Date: 20210114
  Serious: Yes (Other)
  Sender: FDA-Public Use
  Company Number: FR-TAKEDA-2019TUS068032

PATIENT
  Sex: Female
  Weight: 90 kg

DRUGS (19)
  1. IXAZOMIB [Suspect]
     Active Substance: IXAZOMIB
     Indication: PLASMA CELL MYELOMA
     Dosage: 4 MILLIGRAM, 1/WEEK
     Route: 048
     Dates: start: 20181122
  2. IXAZOMIB [Suspect]
     Active Substance: IXAZOMIB
     Dosage: 3 MILLIGRAM, 1/WEEK
     Route: 048
  3. REVLIMID [Suspect]
     Active Substance: LENALIDOMIDE
     Indication: PLASMA CELL MYELOMA
     Dosage: 20 MILLIGRAM, QD
     Route: 048
     Dates: start: 20181122
  4. AERIUS (DESLORATADINE) [Concomitant]
     Active Substance: DESLORATADINE
     Indication: HYPERSENSITIVITY
     Dosage: 5 MILLIGRAM, QD
     Route: 048
  5. ZESTRIL [Concomitant]
     Active Substance: LISINOPRIL
     Indication: HYPERTENSION
     Dosage: 20 MILLIGRAM, QD
     Route: 048
  6. DAONIL [Concomitant]
     Active Substance: GLYBURIDE
     Indication: DIABETES MELLITUS
     Dosage: 10 MILLIGRAM, QD
     Route: 048
  7. DEXAMETHASONE. [Suspect]
     Active Substance: DEXAMETHASONE
     Indication: PLASMA CELL MYELOMA
     Dosage: 20 MILLIGRAM
     Route: 048
     Dates: start: 20181122
  8. TRAMADOL. [Concomitant]
     Active Substance: TRAMADOL
     Indication: PAIN
     Dosage: 100 MILLIGRAM, QD
     Route: 048
  9. ULTRA-LEVURE [Concomitant]
     Active Substance: SACCHAROMYCES CEREVISIAE
     Indication: DIARRHOEA
     Dosage: UNK UNK, QD
     Route: 048
  10. BROMAZEPAM [Concomitant]
     Active Substance: BROMAZEPAM
     Indication: ANXIOLYTIC THERAPY
     Dosage: 1.5 MILLIGRAM, QD
     Route: 048
  11. AMAREL [Concomitant]
     Active Substance: GLIMEPIRIDE
     Indication: DIABETES MELLITUS
     Dosage: 4 MILLIGRAM, QD
     Route: 048
  12. TRAMADOL. [Concomitant]
     Active Substance: TRAMADOL
     Dosage: 50 MILLIGRAM, QD
     Route: 048
  13. MOPRAL                             /00661201/ [Concomitant]
     Active Substance: OMEPRAZOLE SODIUM
     Dosage: 40 MILLIGRAM, QD
     Route: 048
  14. ZELITREX [Concomitant]
     Active Substance: VALACYCLOVIR HYDROCHLORIDE
     Indication: ANTIVIRAL TREATMENT
     Dosage: 1 GRAM, QD
     Route: 048
  15. ASPEGIC                            /00002703/ [Concomitant]
     Active Substance: ASPIRIN DL-LYSINE
     Indication: PYREXIA
  16. ACTRAPID [Concomitant]
     Active Substance: INSULIN HUMAN
     Indication: DIABETES MELLITUS
     Dosage: UNK
     Route: 058
  17. LANTUS [Concomitant]
     Active Substance: INSULIN GLARGINE
     Indication: DIABETES MELLITUS
     Dosage: UNK
     Route: 065
  18. LYRICA [Concomitant]
     Active Substance: PREGABALIN
     Indication: ANXIETY
     Dosage: 300 MILLIGRAM, QD
     Route: 048
  19. ASPEGIC                            /00002703/ [Concomitant]
     Active Substance: ASPIRIN DL-LYSINE
     Indication: PAIN
     Dosage: 100 MILLIGRAM, QD
     Route: 048

REACTIONS (4)
  - Urinary tract infection [Unknown]
  - Hypoaesthesia [Recovered/Resolved]
  - Neutropenia [Recovered/Resolved]
  - Diarrhoea [Recovering/Resolving]

NARRATIVE: CASE EVENT DATE: 20190110
